FAERS Safety Report 9486199 (Version 1)
Quarter: 2013Q3

REPORT INFORMATION
  Report Type: Spontaneous
  Country: US (occurrence: None)
  Receive Date: 20130827
  Receipt Date: 20130827
  Transmission Date: 20140515
  Serious: Yes (Disabling)
  Sender: FDA-Public Use
  Company Number: None

PATIENT
  Age: 44 Year
  Sex: Female
  Weight: 54.43 kg

DRUGS (1)
  1. LEVOFLOXACIN [Suspect]
     Indication: MASTITIS
     Dosage: 750MG/ 1 TABLET ONCE DAILY TAKEN BY MOUTH
     Route: 048
     Dates: start: 20130816, end: 20130822

REACTIONS (8)
  - Myalgia [None]
  - Gait disturbance [None]
  - Arthralgia [None]
  - Musculoskeletal pain [None]
  - Pain in extremity [None]
  - Local swelling [None]
  - Local swelling [None]
  - Tendon rupture [None]
